FAERS Safety Report 8610216-6 (Version None)
Quarter: 2012Q3

REPORT INFORMATION
  Report Type: 
  Country: None (occurrence: None)
  Receive Date: 20120822
  Receipt Date: 20120816
  Transmission Date: 20120928
  Serious: Yes (Hospitalization, Other)
  Sender: FDA-Public Use
  Company Number: US-AMGEN-USASP2012052066

PATIENT
  Age: 60 Year
  Sex: Female

DRUGS (1)
  1. ENBREL [Suspect]
     Indication: RHEUMATOID ARTHRITIS
     Dosage: 50 MG, QWK
     Dates: start: 20080129

REACTIONS (8)
  - ARTHRALGIA [None]
  - COUGH [None]
  - SINUSITIS [None]
  - ARTHRITIS INFECTIVE [None]
  - HYPERSENSITIVITY [None]
  - JOINT DISLOCATION [None]
  - PROCEDURAL HAEMORRHAGE [None]
  - ANAEMIA [None]
